FAERS Safety Report 4908921-8 (Version None)
Quarter: 2006Q1

REPORT INFORMATION
  Report Type: 
  Country: None (occurrence: None)
  Receive Date: 20060209
  Receipt Date: 20060131
  Transmission Date: 20060701
  Serious: Yes (Other)
  Sender: FDA-Public Use
  Company Number: 2006016552

PATIENT
  Age: 57 Year
  Sex: Male
  Weight: 102.0593 kg

DRUGS (4)
  1. DILANTIN KAPSEAL [Suspect]
     Indication: EPILEPSY
     Dosage: 200MG, 300MG (2 IN 1 D),ORAL
     Route: 048
     Dates: start: 19850101, end: 20050915
  2. PHENYTOIN SODIUM [Suspect]
     Indication: EPILEPSY
     Dosage: 200 MG, 300 MG (2 IN 1 D), ORAL
     Route: 048
     Dates: start: 20050901
  3. CLARITIN [Concomitant]
  4. ADVIL [Concomitant]

REACTIONS (2)
  - DRUG LEVEL DECREASED [None]
  - GRAND MAL CONVULSION [None]
